FAERS Safety Report 7648854-X (Version None)
Quarter: 2011Q3

REPORT INFORMATION
  Report Type: 
  Country: None (occurrence: None)
  Receive Date: 20110801
  Receipt Date: 20110729
  Transmission Date: 20111222
  Serious: Yes (Other)
  Sender: FDA-Public Use
  Company Number: US-PFIZER INC-2011165848

PATIENT
  Sex: Female
  Weight: 50 kg

DRUGS (2)
  1. LYRICA [Suspect]
     Indication: PAIN
     Dosage: 25 MG
     Route: 048
     Dates: start: 20110706, end: 20110729
  2. LYRICA [Suspect]
     Indication: SLEEP DISORDER

REACTIONS (6)
  - DYSPNOEA [None]
  - DRY EYE [None]
  - TREMOR [None]
  - VISUAL ACUITY REDUCED [None]
  - BURNING SENSATION [None]
  - ASTHENOPIA [None]
